FAERS Safety Report 10220161 (Version 1)
Quarter: 2014Q2

REPORT INFORMATION
  Report Type: Spontaneous
  Country: US (occurrence: US)
  Receive Date: 20140605
  Receipt Date: 20140605
  Transmission Date: 20141212
  Serious: No
  Sender: FDA-Public Use
  Company Number: US-GILEAD-2014-0104324

PATIENT
  Sex: Male

DRUGS (3)
  1. LETAIRIS [Suspect]
     Indication: PRODUCT USED FOR UNKNOWN INDICATION
     Dosage: 5 MG, QD
     Route: 065
     Dates: start: 20120919
  2. XARELTO [Concomitant]
  3. ADCIRCA [Concomitant]

REACTIONS (4)
  - Unevaluable event [Unknown]
  - Dyspnoea [Unknown]
  - Fatigue [Unknown]
  - Haematocrit decreased [Unknown]
